FAERS Safety Report 8333718-9 (Version None)
Quarter: 2012Q2

REPORT INFORMATION
  Report Type: 
  Country: None (occurrence: None)
  Receive Date: 20120503
  Receipt Date: 20120430
  Transmission Date: 20120825
  Serious: Yes (Hospitalization)
  Sender: FDA-Public Use
  Company Number: US-BAYER-2012-042766

PATIENT
  Age: 30 Year
  Sex: Female
  Weight: 186.85 kg

DRUGS (4)
  1. YASMIN [Suspect]
  2. YAZ [Suspect]
  3. SKELAXIN [Concomitant]
  4. IBUPROFEN (ADVIL) [Concomitant]

REACTIONS (1)
  - DEEP VEIN THROMBOSIS [None]
